FAERS Safety Report 6824688-0 (Version None)
Quarter: 2010Q3

REPORT INFORMATION
  Report Type: 
  Country: None (occurrence: None)
  Receive Date: 20100708
  Receipt Date: 20061109
  Transmission Date: 20110219
  Serious: No
  Sender: FDA-Public Use
  Company Number: US-PFIZER INC-2006140524

PATIENT
  Sex: Female
  Weight: 80.74 kg

DRUGS (6)
  1. CHANTIX [Suspect]
     Indication: SMOKING CESSATION THERAPY
     Dates: start: 20060101
  2. ZYRTEC [Suspect]
  3. DUONEB [Concomitant]
  4. CARDURA [Concomitant]
  5. ESTRATEST [Concomitant]
  6. CRESTOR [Concomitant]

REACTIONS (1)
  - DYSPNOEA [None]
